FAERS Safety Report 12489714 (Version 1)
Quarter: 2016Q2

REPORT INFORMATION
  Report Type: Report from Study
  Country: MX (occurrence: MX)
  Receive Date: 20160622
  Receipt Date: 20160622
  Transmission Date: 20160815
  Serious: Yes (Other)
  Sender: FDA-Public Use
  Company Number: MX-INCYTE CORPORATION-2016IN003645

PATIENT
  Sex: Female

DRUGS (1)
  1. JAKAFI [Suspect]
     Active Substance: RUXOLITINIB
     Indication: LEUKAEMIA
     Dosage: 20 MG, QD
     Route: 065

REACTIONS (4)
  - Mental impairment [Unknown]
  - Product use issue [Unknown]
  - Anxiety [Unknown]
  - Disorientation [Unknown]
